FAERS Safety Report 5704281-3 (Version None)
Quarter: 2008Q2

REPORT INFORMATION
  Report Type: 
  Country: None (occurrence: None)
  Receive Date: 20080414
  Receipt Date: 20080403
  Transmission Date: 20081010
  Serious: Yes (Other)
  Sender: FDA-Public Use
  Company Number: US-JNJFOC-20071201826

PATIENT
  Sex: Female
  Weight: 73.48 kg

DRUGS (5)
  1. REMICADE [Suspect]
     Indication: ARTHRITIS
     Route: 042
  2. REMICADE [Suspect]
     Indication: CROHN'S DISEASE
     Route: 042
  3. STEROIDS [Concomitant]
  4. SOLU-MEDROL [Concomitant]
     Route: 042
  5. BENADRYL [Concomitant]

REACTIONS (1)
  - ROTATOR CUFF SYNDROME [None]
